FAERS Safety Report 13500025 (Version 8)
Quarter: 2019Q2

REPORT INFORMATION
  Report Type: Spontaneous
  Country: CA (occurrence: CA)
  Receive Date: 20170501
  Receipt Date: 20190618
  Transmission Date: 20190711
  Serious: Yes (Other)
  Sender: FDA-Public Use
  Company Number: CA-PFIZER INC-2017188696

PATIENT
  Age: 51 Year
  Sex: Female

DRUGS (24)
  1. RAMIPRIL. [Suspect]
     Active Substance: RAMIPRIL
     Indication: CARDIAC FAILURE CONGESTIVE
     Dosage: UNK
     Route: 065
  2. EPIRUBICIN HCL [Suspect]
     Active Substance: EPIRUBICIN HYDROCHLORIDE
     Indication: HER-2 POSITIVE BREAST CANCER
     Dosage: 100 MG/M2, CYCLIC (100 MG/M2 PER DOSE)
     Route: 065
  3. EPIRUBICIN HCL [Suspect]
     Active Substance: EPIRUBICIN HYDROCHLORIDE
     Indication: PROGESTERONE RECEPTOR ASSAY NEGATIVE
  4. FLUOROURACIL. [Suspect]
     Active Substance: FLUOROURACIL
     Indication: OESTROGEN RECEPTOR ASSAY NEGATIVE
     Dosage: UNK
  5. CYCLOPHOSPHAMIDE. [Suspect]
     Active Substance: CYCLOPHOSPHAMIDE
     Indication: OESTROGEN RECEPTOR ASSAY NEGATIVE
     Dosage: UNK
  6. TRASTUZUMAB. [Suspect]
     Active Substance: TRASTUZUMAB
     Indication: PROGESTERONE RECEPTOR ASSAY NEGATIVE
     Dosage: UNK
  7. EPIRUBICIN HCL [Suspect]
     Active Substance: EPIRUBICIN HYDROCHLORIDE
     Indication: OESTROGEN RECEPTOR ASSAY NEGATIVE
     Dosage: UNK
  8. EPIRUBICIN HCL [Suspect]
     Active Substance: EPIRUBICIN HYDROCHLORIDE
     Indication: BREAST CANCER STAGE III
  9. TRASTUZUMAB. [Suspect]
     Active Substance: TRASTUZUMAB
     Indication: OESTROGEN RECEPTOR ASSAY NEGATIVE
     Dosage: UNK, CYCLIC (MAINTENANCE TRASTUZUMAB TO COMPLETE A 1-YEAR COURSE)
  10. BISOPROLOL [Concomitant]
     Active Substance: BISOPROLOL
     Indication: CARDIAC FAILURE CONGESTIVE
     Dosage: UNK
  11. DOCETAXEL. [Suspect]
     Active Substance: DOCETAXEL
     Indication: OESTROGEN RECEPTOR ASSAY NEGATIVE
     Dosage: UNK
  12. DOCETAXEL. [Suspect]
     Active Substance: DOCETAXEL
     Indication: BREAST CANCER STAGE III
  13. CYCLOPHOSPHAMIDE. [Suspect]
     Active Substance: CYCLOPHOSPHAMIDE
     Indication: BREAST CANCER STAGE III
  14. DOCETAXEL. [Suspect]
     Active Substance: DOCETAXEL
     Indication: HER-2 POSITIVE BREAST CANCER
     Dosage: UNK, CYCLIC (3 CYCLES)
     Route: 042
  15. FLUOROURACIL. [Suspect]
     Active Substance: FLUOROURACIL
     Indication: HER-2 POSITIVE BREAST CANCER
     Dosage: UNK, CYCLIC (3 CYCLES)
     Route: 065
  16. KADCYLA [Suspect]
     Active Substance: ADO-TRASTUZUMAB EMTANSINE
     Indication: OESTROGEN RECEPTOR ASSAY NEGATIVE
     Dosage: UNK
  17. BISOPROLOL [Concomitant]
     Active Substance: BISOPROLOL
     Dosage: 5 MG, DAILY (TITRATED UP TO MAXIMAL TOLERABLE DOSES 5 MG)
  18. DOCETAXEL. [Suspect]
     Active Substance: DOCETAXEL
     Indication: PROGESTERONE RECEPTOR ASSAY NEGATIVE
  19. TRASTUZUMAB. [Suspect]
     Active Substance: TRASTUZUMAB
     Indication: HER-2 POSITIVE BREAST CANCER
     Dosage: UNK, CYCLIC (3 CYCLES)
     Route: 065
  20. FLUOROURACIL. [Suspect]
     Active Substance: FLUOROURACIL
     Indication: PROGESTERONE RECEPTOR ASSAY NEGATIVE
  21. FLUOROURACIL. [Suspect]
     Active Substance: FLUOROURACIL
     Indication: BREAST CANCER STAGE III
  22. CYCLOPHOSPHAMIDE. [Suspect]
     Active Substance: CYCLOPHOSPHAMIDE
     Indication: HER-2 POSITIVE BREAST CANCER
     Dosage: UNK, CYCLIC (3 CYCLES)
     Route: 065
  23. CYCLOPHOSPHAMIDE. [Suspect]
     Active Substance: CYCLOPHOSPHAMIDE
     Indication: PROGESTERONE RECEPTOR ASSAY NEGATIVE
  24. TRASTUZUMAB. [Suspect]
     Active Substance: TRASTUZUMAB
     Indication: BREAST CANCER STAGE III

REACTIONS (5)
  - Drug intolerance [Recovering/Resolving]
  - Ejection fraction decreased [Recovering/Resolving]
  - Cardiac failure congestive [Recovering/Resolving]
  - Left ventricular dysfunction [Recovering/Resolving]
  - Troponin I increased [Recovering/Resolving]
